FAERS Safety Report 9177020 (Version 1)
Quarter: 2013Q1

REPORT INFORMATION
  Report Type: Spontaneous
  Country: US (occurrence: None)
  Receive Date: 20130320
  Receipt Date: 20130320
  Transmission Date: 20140127
  Serious: Yes (Other)
  Sender: FDA-Public Use
  Company Number: None

PATIENT
  Age: 62 Year
  Sex: Male
  Weight: 88.45 kg

DRUGS (1)
  1. TAMSULOSIN [Suspect]
     Dosage: 1 CAPSULE DAILY PO
     Dates: start: 20130215, end: 20130319

REACTIONS (2)
  - Dry mouth [None]
  - Dysphagia [None]
